FAERS Safety Report 10205229 (Version 1)
Quarter: 2014Q2

REPORT INFORMATION
  Report Type: Spontaneous
  Country: DE (occurrence: DE)
  Receive Date: 20140529
  Receipt Date: 20140529
  Transmission Date: 20141212
  Serious: Yes (Congenital Anomaly)
  Sender: FDA-Public Use
  Company Number: DE-MYLANLABS-2014S1011431

PATIENT
  Age: 0 Year
  Sex: 0

DRUGS (2)
  1. TERBINAFINE [Suspect]
     Indication: ONYCHOMYCOSIS
     Dosage: 250 [MG/D ]
     Route: 064
     Dates: start: 20130328, end: 20130505
  2. FOLIC ACID [Concomitant]
     Indication: PROPHYLAXIS OF NEURAL TUBE DEFECT
     Route: 064
     Dates: start: 20130505, end: 20130624

REACTIONS (2)
  - Anencephaly [Not Recovered/Not Resolved]
  - Exposure during pregnancy [Recovered/Resolved]
